FAERS Safety Report 22943621 (Version 4)
Quarter: 2023Q4

REPORT INFORMATION
  Report Type: Report from Study
  Country: US (occurrence: US)
  Receive Date: 20230914
  Receipt Date: 20231115
  Transmission Date: 20240110
  Serious: Yes (Other)
  Sender: FDA-Public Use
  Company Number: US-002147023-NVSC2023US195853

PATIENT
  Sex: Female

DRUGS (1)
  1. PIQRAY [Suspect]
     Active Substance: ALPELISIB
     Indication: Breast cancer metastatic
     Dosage: UNK
     Route: 065

REACTIONS (6)
  - Diverticulitis [Unknown]
  - Pain [Unknown]
  - Constipation [Recovering/Resolving]
  - Faeces discoloured [Unknown]
  - Diarrhoea [Recovering/Resolving]
  - Fatigue [Unknown]
